FAERS Safety Report 6240640-0 (Version None)
Quarter: 2009Q2

REPORT INFORMATION
  Report Type: 
  Country: None (occurrence: None)
  Receive Date: 20090623
  Receipt Date: 20081120
  Transmission Date: 20091009
  Serious: No
  Sender: FDA-Public Use
  Company Number: US-ASTRAZENECA-2008UW26100

PATIENT
  Age: 5 Month
  Sex: Female

DRUGS (1)
  1. PULMICORT RESPULES [Suspect]
     Indication: OXYGEN SATURATION DECREASED
     Dosage: UNKNOWN
     Route: 055
     Dates: start: 20081120

REACTIONS (2)
  - DRUG ADMINISTRATION ERROR [None]
  - RASH [None]
